FAERS Safety Report 14421921 (Version 5)
Quarter: 2019Q1

REPORT INFORMATION
  Report Type: Spontaneous
  Country: US (occurrence: US)
  Receive Date: 20180123
  Receipt Date: 20190328
  Transmission Date: 20190417
  Serious: Yes (Other)
  Sender: FDA-Public Use
  Company Number: US-BRISTOL-MYERS SQUIBB COMPANY-BMS-2018-005732

PATIENT
  Sex: Female
  Weight: 78.92 kg

DRUGS (1)
  1. ORENCIA [Suspect]
     Active Substance: ABATACEPT
     Indication: RHEUMATOID ARTHRITIS
     Dosage: 125 MG, QWK
     Route: 058
     Dates: start: 201708

REACTIONS (6)
  - Nasopharyngitis [Unknown]
  - Arthritis [Unknown]
  - Malaise [Unknown]
  - Infection [Unknown]
  - Oropharyngeal pain [Unknown]
  - Ill-defined disorder [Unknown]
